FAERS Safety Report 9638310 (Version 1)
Quarter: 2013Q4

REPORT INFORMATION
  Report Type: Spontaneous
  Country: US (occurrence: US)
  Receive Date: 20131022
  Receipt Date: 20131022
  Transmission Date: 20140711
  Serious: Yes (Other)
  Sender: FDA-Public Use
  Company Number: US-FRI-1000050347

PATIENT
  Age: 19 Year
  Sex: Male

DRUGS (4)
  1. VIIBRYD [Suspect]
     Indication: DEPRESSION
     Dosage: 10MG
     Route: 048
     Dates: start: 201308, end: 2013
  2. VIIBRYD [Suspect]
     Dosage: 20MG
     Route: 048
     Dates: start: 2013, end: 2013
  3. VIIBRYD [Suspect]
     Indication: DEPRESSION
     Dosage: 40MG
     Route: 048
     Dates: start: 2013, end: 201310
  4. VIIBRYD [Suspect]
     Dosage: 20MG
     Route: 048
     Dates: start: 201310, end: 201310

REACTIONS (2)
  - Suicidal ideation [Recovered/Resolved]
  - Panic attack [Recovered/Resolved]
